FAERS Safety Report 21259685 (Version 4)
Quarter: 2022Q4

REPORT INFORMATION
  Report Type: Report from Study
  Country: MX (occurrence: MX)
  Receive Date: 20220826
  Receipt Date: 20221006
  Transmission Date: 20230112
  Serious: Yes (Hospitalization, Other)
  Sender: FDA-Public Use
  Company Number: MX-NOVARTISPH-NVSC2022MX184464

PATIENT
  Sex: Female
  Weight: 49 kg

DRUGS (1)
  1. KISQALI [Suspect]
     Active Substance: RIBOCICLIB
     Indication: Breast cancer
     Dosage: UNK
     Route: 048

REACTIONS (21)
  - Feeling abnormal [Unknown]
  - Bone lesion [Unknown]
  - Metastasis [Unknown]
  - Muscle rupture [Unknown]
  - Ageusia [Unknown]
  - Discomfort [Unknown]
  - Spinal deformity [Unknown]
  - Nausea [Unknown]
  - Vomiting [Unknown]
  - Pain [Unknown]
  - Sciatica [Unknown]
  - Emotional disorder [Unknown]
  - Gastritis [Unknown]
  - Insomnia [Not Recovered/Not Resolved]
  - Weight abnormal [Not Recovered/Not Resolved]
  - Gastrointestinal disorder [Not Recovered/Not Resolved]
  - Constipation [Not Recovered/Not Resolved]
  - Back pain [Unknown]
  - Tendon dislocation [Unknown]
  - Mass [Unknown]
  - Stress [Unknown]
